FAERS Safety Report 14141881 (Version 2)
Quarter: 2018Q1

REPORT INFORMATION
  Report Type: Spontaneous
  Country: US (occurrence: US)
  Receive Date: 20171030
  Receipt Date: 20180110
  Transmission Date: 20180508
  Serious: No
  Sender: FDA-Public Use
  Company Number: US-PFIZER INC-2017465582

PATIENT
  Age: 69 Year
  Sex: Female
  Weight: 57.46 kg

DRUGS (1)
  1. XELJANZ [Suspect]
     Active Substance: TOFACITINIB CITRATE
     Indication: RHEUMATOID ARTHRITIS
     Dosage: 5 MG, 2X/DAY
     Route: 048
     Dates: start: 20170924

REACTIONS (6)
  - Nasopharyngitis [Unknown]
  - Decreased appetite [Unknown]
  - Oropharyngeal pain [Unknown]
  - Cough [Unknown]
  - Asthenia [Unknown]
  - Dental caries [Unknown]

NARRATIVE: CASE EVENT DATE: 2017
